FAERS Safety Report 21849451 (Version 1)
Quarter: 2023Q1

REPORT INFORMATION
  Report Type: Spontaneous
  Country: GB (occurrence: GB)
  Receive Date: 20230111
  Receipt Date: 20230111
  Transmission Date: 20230418
  Serious: Yes (Hospitalization)
  Sender: FDA-Public Use
  Company Number: GB-AMGEN-GBRSP2023000284

PATIENT
  Age: 25 Year
  Sex: Male
  Weight: 68.2 kg

DRUGS (3)
  1. ADALIMUMAB [Suspect]
     Active Substance: ADALIMUMAB
     Indication: Psoriasis
     Dosage: 40 MILLIGRAM, Q2WK
     Route: 065
     Dates: start: 20190214
  2. COVID-19 vaccine [Concomitant]
     Dosage: UNK
     Dates: start: 20210623, end: 20210623
  3. COVID-19 vaccine [Concomitant]
     Dosage: UNK
     Dates: start: 20211112, end: 20211112

REACTIONS (1)
  - Gastritis [Recovered/Resolved]

NARRATIVE: CASE EVENT DATE: 20220220
